FAERS Safety Report 10677557 (Version 3)
Quarter: 2015Q2

REPORT INFORMATION
  Report Type: Spontaneous
  Country: US (occurrence: US)
  Receive Date: 20141228
  Receipt Date: 20150419
  Transmission Date: 20150821
  Serious: No
  Sender: FDA-Public Use
  Company Number: US-009507513-1412USA009264

PATIENT
  Age: 40 Year
  Sex: Female
  Weight: 67.12 kg

DRUGS (1)
  1. NUVARING [Suspect]
     Active Substance: ETHINYL ESTRADIOL\ETONOGESTREL
     Indication: CONTRACEPTION
     Dosage: 3 WEEKS, 1WEEK OUT, 1 RING
     Route: 067
     Dates: start: 201310

REACTIONS (2)
  - Vaginitis bacterial [Recovered/Resolved]
  - Vaginitis bacterial [Recovered/Resolved]

NARRATIVE: CASE EVENT DATE: 20141105
